FAERS Safety Report 18540185 (Version 1)
Quarter: 2020Q4

REPORT INFORMATION
  Report Type: Spontaneous
  Country: DE (occurrence: DE)
  Receive Date: 20201124
  Receipt Date: 20201124
  Transmission Date: 20210114
  Serious: Yes (Hospitalization)
  Sender: FDA-Public Use
  Company Number: DE-PFIZER INC-2020458788

PATIENT
  Age: 47 Year
  Sex: Male

DRUGS (9)
  1. TESTOGEL [Suspect]
     Active Substance: TESTOSTERONE
     Dosage: 50 MG
     Route: 061
  2. METAMIZOLE [Suspect]
     Active Substance: METAMIZOLE
     Dosage: 500 MG
     Route: 065
  3. TRULICITY [Concomitant]
     Active Substance: DULAGLUTIDE
     Dosage: UNK
     Route: 065
  4. IBUPROFEN. [Suspect]
     Active Substance: IBUPROFEN
     Dosage: 800 MG
     Route: 065
  5. ACTRAPID [Concomitant]
     Active Substance: INSULIN HUMAN
     Dosage: UNK
     Route: 065
  6. PANTOPRAZOLE [Concomitant]
     Active Substance: PANTOPRAZOLE
     Dosage: UNK
     Route: 065
  7. CIPRAMIL [CITALOPRAM HYDROBROMIDE] [Suspect]
     Active Substance: CITALOPRAM HYDROBROMIDE
     Dosage: 1-0-0-0 (20 MG)
     Route: 065
  8. ERGENYL CHRONO [Suspect]
     Active Substance: VALPROIC ACID
     Dosage: 1-0-1-0 (500 MG)
     Route: 048
  9. THYRONAJOD [Concomitant]
     Active Substance: LEVOTHYROXINE SODIUM\POTASSIUM IODIDE
     Dosage: UNK
     Route: 065

REACTIONS (2)
  - Headache [Unknown]
  - Product administration error [Unknown]
